FAERS Safety Report 17975234 (Version 3)
Quarter: 2020Q3

REPORT INFORMATION
  Report Type: Spontaneous
  Country: US (occurrence: US)
  Receive Date: 20200702
  Receipt Date: 20200721
  Transmission Date: 20201103
  Serious: Yes (Hospitalization, Other)
  Sender: FDA-Public Use
  Company Number: US-GILEAD-2020-0477746

PATIENT
  Age: 61 Year
  Sex: Male
  Weight: 71.3 kg

DRUGS (5)
  1. REMDESIVIR. [Suspect]
     Active Substance: REMDESIVIR
     Indication: COVID-19
     Dosage: 200 MG, QD
     Route: 042
     Dates: start: 20200627, end: 20200628
  2. IOHEXOL [Concomitant]
     Active Substance: IOHEXOL
     Indication: DIAGNOSTIC PROCEDURE
     Dosage: 90ML
     Route: 042
     Dates: start: 20200626, end: 20200626
  3. DEXAMETHASONE. [Concomitant]
     Active Substance: DEXAMETHASONE
     Indication: COVID-19
     Dosage: 6MG
     Route: 042
     Dates: start: 20200626, end: 20200701
  4. MULTIVITAMINS;MINERALS [Concomitant]
     Dosage: UNK
     Route: 048
     Dates: start: 20200626, end: 20200706
  5. ENOXAPARIN [Concomitant]
     Active Substance: ENOXAPARIN
     Indication: EMBOLISM VENOUS
     Dosage: 70 MG, BID
     Route: 058
     Dates: start: 20200626, end: 20200705

REACTIONS (2)
  - Liver function test increased [Recovered/Resolved]
  - Infection [Unknown]

NARRATIVE: CASE EVENT DATE: 20200627
